FAERS Safety Report 5329159-9 (Version None)
Quarter: 2007Q2

REPORT INFORMATION
  Report Type: 
  Country: None (occurrence: None)
  Receive Date: 20070518
  Receipt Date: 20070511
  Transmission Date: 20071010
  Serious: Yes (Hospitalization, Other)
  Sender: FDA-Public Use
  Company Number: US-ABBOTT-07P-163-0368120-00

PATIENT
  Sex: Male
  Weight: 86.26 kg

DRUGS (4)
  1. HUMIRA [Suspect]
     Indication: RHEUMATOID ARTHRITIS
     Route: 058
     Dates: start: 20050101, end: 20060501
  2. HUMIRA [Suspect]
     Route: 058
     Dates: start: 20070101
  3. PREDNISONE TAB [Concomitant]
     Indication: RHEUMATOID ARTHRITIS
     Route: 048
     Dates: start: 20030101
  4. CREON [Concomitant]
     Indication: PANCREATITIS ACUTE
     Route: 048
     Dates: start: 20060101

REACTIONS (6)
  - ARTHRITIS BACTERIAL [None]
  - BODY TEMPERATURE [None]
  - FALL [None]
  - LIGAMENT RUPTURE [None]
  - LIMB INJURY [None]
  - MENISCUS LESION [None]
